FAERS Safety Report 19742393 (Version 1)
Quarter: 2021Q3

REPORT INFORMATION
  Report Type: Spontaneous
  Country: US (occurrence: US)
  Receive Date: 20210824
  Receipt Date: 20210824
  Transmission Date: 20211014
  Serious: No
  Sender: FDA-Public Use
  Company Number: US-PFIZER INC-202101026620

PATIENT
  Age: 78 Year
  Sex: Female
  Weight: 51.8 kg

DRUGS (1)
  1. IBRANCE [Suspect]
     Active Substance: PALBOCICLIB
     Indication: BREAST CANCER FEMALE
     Dosage: 100 MG
     Dates: end: 20210726

REACTIONS (1)
  - Glycosylated haemoglobin decreased [Recovered/Resolved]

NARRATIVE: CASE EVENT DATE: 20210726
